FAERS Safety Report 7742958-9 (Version None)
Quarter: 2011Q3

REPORT INFORMATION
  Report Type: 
  Country: None (occurrence: None)
  Receive Date: 20110912
  Receipt Date: 20110901
  Transmission Date: 20111222
  Serious: Yes (Other)
  Sender: FDA-Public Use
  Company Number: US-PERRIGO-11US007260

PATIENT
  Sex: Female

DRUGS (1)
  1. ASPIRIN [Suspect]
     Indication: PAIN
     Dosage: 325 MG, PRN
     Route: 048
     Dates: end: 20110801

REACTIONS (2)
  - HYPOACUSIS [None]
  - TINNITUS [None]
